FAERS Safety Report 6531118-5 (Version None)
Quarter: 2010Q1

REPORT INFORMATION
  Report Type: 
  Country: None (occurrence: None)
  Receive Date: 20100108
  Receipt Date: 20091208
  Transmission Date: 20100710
  Serious: No
  Sender: FDA-Public Use
  Company Number: US-BAYER-200942327NA

PATIENT
  Age: 67 Year
  Sex: Female

DRUGS (4)
  1. SOTALOL HCL [Suspect]
     Indication: ARRHYTHMIA
     Dates: start: 20091001
  2. MEXILETINE HYDROCHLORIDE [Suspect]
     Indication: ARRHYTHMIA
     Dosage: UNIT DOSE: 150 MG
     Route: 048
  3. METOPROLOL SUCCINATE [Suspect]
     Indication: ARRHYTHMIA
     Dosage: UNIT DOSE: 25 MG
     Route: 048
  4. THYROID TAB [Concomitant]
     Indication: HYPOTHYROIDISM
     Route: 048

REACTIONS (2)
  - PRURITUS [None]
  - RASH [None]
